FAERS Safety Report 5902022-8 (Version None)
Quarter: 2008Q3

REPORT INFORMATION
  Report Type: 
  Country: None (occurrence: None)
  Receive Date: 20080929
  Receipt Date: 20080917
  Transmission Date: 20090109
  Serious: Yes (Death, Hospitalization)
  Sender: FDA-Public Use
  Company Number: GB-PFIZER INC-2007001329

PATIENT
  Sex: Male

DRUGS (10)
  1. SU-011,248 [Suspect]
     Indication: RENAL CELL CARCINOMA
     Route: 048
     Dates: start: 20060728, end: 20061211
  2. ASPIRIN [Concomitant]
     Dates: start: 20060701
  3. DIPYRIDAMOLE [Concomitant]
     Dates: start: 20060101
  4. ALLOPURINOL [Concomitant]
     Dates: start: 20060101, end: 20061220
  5. NIFEDIPINE [Concomitant]
     Dates: start: 20050101
  6. SOTALOL [Concomitant]
     Dates: start: 20050101
  7. ACETAMINOPHEN W/ CODEINE [Concomitant]
     Dates: start: 20060915
  8. VOLTAREN [Concomitant]
     Dates: start: 20060915
  9. METRONIDAZOLE [Concomitant]
  10. AUGMENTIN '125' [Concomitant]

REACTIONS (3)
  - PLATELET COUNT DECREASED [None]
  - RENAL FAILURE [None]
  - TUBULOINTERSTITIAL NEPHRITIS [None]
